FAERS Safety Report 9892828 (Version 2)
Quarter: 2014Q1

REPORT INFORMATION
  Report Type: Report from Study
  Country: US (occurrence: US)
  Receive Date: 20140213
  Receipt Date: 20140217
  Transmission Date: 20141002
  Serious: Yes (Death)
  Sender: FDA-Public Use
  Company Number: US-ROCHE-1327053

PATIENT
  Age: 53 Year
  Sex: Female

DRUGS (2)
  1. AVASTIN [Suspect]
     Indication: GLIOBLASTOMA
     Dosage: 02/JUN/2011, RECEIVED AT SAME DOSE.
     Route: 042
     Dates: start: 20110519
  2. TYLENOL [Concomitant]
     Route: 048

REACTIONS (3)
  - Death [Fatal]
  - Asthenia [Unknown]
  - Ecchymosis [Unknown]
